FAERS Safety Report 15073024 (Version 1)
Quarter: 2018Q2

REPORT INFORMATION
  Report Type: Spontaneous
  Country: SE (occurrence: SE)
  Receive Date: 20180627
  Receipt Date: 20180627
  Transmission Date: 20180711
  Serious: Yes (Other)
  Sender: FDA-Public Use
  Company Number: SE-TEVA-2018-SE-912422

PATIENT
  Age: 47 Year
  Sex: Female
  Weight: 70 kg

DRUGS (4)
  1. PREDNISOLONE. [Concomitant]
     Active Substance: PREDNISOLONE
     Dates: start: 19950101
  2. D-VITAMIN [Concomitant]
     Route: 065
  3. BEHEPAN [Concomitant]
     Active Substance: HYDROXOCOBALAMIN
     Route: 065
  4. FINASTERIDE. [Suspect]
     Active Substance: FINASTERIDE
     Dosage: EXPONERING VIA SEXUALPARTNER
     Route: 065
     Dates: start: 20130101, end: 20180424

REACTIONS (2)
  - Vulvovaginal dryness [Recovered/Resolved]
  - Exposure via body fluid [Recovered/Resolved]

NARRATIVE: CASE EVENT DATE: 20130101
